FAERS Safety Report 5637987-5 (Version None)
Quarter: 2008Q1

REPORT INFORMATION
  Report Type: 
  Country: None (occurrence: None)
  Receive Date: 20080226
  Receipt Date: 20080117
  Transmission Date: 20080703
  Serious: No
  Sender: FDA-Public Use
  Company Number: US-BAYER-200811830NA

PATIENT
  Age: 62 Year
  Sex: Female

DRUGS (6)
  1. MENOSTAR [Suspect]
     Indication: HOT FLUSH
     Route: 062
     Dates: start: 20071201
  2. LIPITOR [Concomitant]
  3. SYNTHROID [Concomitant]
  4. FUROSEMIDE [Concomitant]
  5. TOPROL-XL [Concomitant]
  6. VITAMIN CAP [Concomitant]

REACTIONS (2)
  - MOOD SWINGS [None]
  - NAUSEA [None]
